FAERS Safety Report 6291480-8 (Version None)
Quarter: 2009Q3

REPORT INFORMATION
  Report Type: 
  Country: None (occurrence: None)
  Receive Date: 20090730
  Receipt Date: 20090701
  Transmission Date: 20100115
  Serious: No
  Sender: FDA-Public Use
  Company Number: US-BAYER-200912184BCC

PATIENT
  Age: 61 Year
  Sex: Female
  Weight: 79 kg

DRUGS (9)
  1. ALEVE [Suspect]
     Indication: SCIATICA
     Dosage: TOTAL DAILY DOSE: 440 MG  UNIT DOSE: 220 MG
     Route: 048
     Dates: start: 19990101
  2. TOPROL-XL [Concomitant]
  3. ZETIA [Concomitant]
  4. REGLAN [Concomitant]
  5. FISH OIL [Concomitant]
  6. VITAMIN E [Concomitant]
  7. EQUATE CALCIUM PLUS D [Concomitant]
  8. FOSAMAX [Concomitant]
  9. GAVISCON [Concomitant]
     Indication: DYSPEPSIA

REACTIONS (2)
  - ABDOMINAL PAIN UPPER [None]
  - HYPERCHLORHYDRIA [None]
